FAERS Safety Report 4860174-5 (Version None)
Quarter: 2005Q4

REPORT INFORMATION
  Report Type: 
  Country: None (occurrence: None)
  Receive Date: 20051219
  Receipt Date: 20051125
  Transmission Date: 20060501
  Serious: Yes (Hospitalization)
  Sender: FDA-Public Use
  Company Number: JP-ROCHE-426100

PATIENT
  Age: 91 Year
  Sex: Male

DRUGS (12)
  1. NICARDIPINE HCL [Suspect]
     Indication: DRUG USE FOR UNKNOWN INDICATION
     Route: 041
     Dates: start: 20051031
  2. DILTIAZEM HYDROCHLORIDE [Concomitant]
     Indication: HYPERTENSION
     Route: 041
     Dates: start: 20051030, end: 20051031
  3. TRANEXAMIC ACID [Concomitant]
     Indication: FLUID REPLACEMENT
     Route: 041
     Dates: start: 20051030
  4. CARBAZOCHROME SODIUM SULFONATE [Concomitant]
     Indication: FLUID REPLACEMENT
     Route: 041
     Dates: start: 20051028, end: 20051105
  5. VITAMEDIN [Concomitant]
     Indication: FLUID REPLACEMENT
     Route: 041
     Dates: start: 20051028, end: 20051105
  6. CEFTRIAXONE SODIUM [Concomitant]
     Indication: PYREXIA
     Route: 041
     Dates: start: 20051028, end: 20051105
  7. GABEXATE MESILATE [Concomitant]
     Indication: PANCREATITIS
     Route: 041
     Dates: start: 20051028, end: 20051105
  8. OMEPRAZOLE [Concomitant]
     Route: 041
     Dates: start: 20051028, end: 20051105
  9. HALOPERIDOL [Concomitant]
     Route: 041
     Dates: start: 20051030
  10. VEEN D [Concomitant]
     Indication: FLUID REPLACEMENT
     Dosage: DR.
     Route: 041
     Dates: start: 20051028, end: 20051105
  11. AMINOFLUID [Concomitant]
     Indication: FLUID REPLACEMENT
     Route: 041
     Dates: start: 20051028, end: 20051105
  12. FAMOTIDINE [Concomitant]
     Indication: FLUID REPLACEMENT
     Route: 041
     Dates: start: 20051028, end: 20051105

REACTIONS (7)
  - BLOOD PRESSURE INCREASED [None]
  - CEREBRAL INFARCTION [None]
  - DEPRESSED LEVEL OF CONSCIOUSNESS [None]
  - DISORIENTATION [None]
  - HYPERTENSIVE ENCEPHALOPATHY [None]
  - MUSCLE SPASMS [None]
  - TREMOR [None]
